FAERS Safety Report 9376840 (Version 1)
Quarter: 2013Q3

REPORT INFORMATION
  Report Type: Spontaneous
  Country: US (occurrence: US)
  Receive Date: 20130701
  Receipt Date: 20130701
  Transmission Date: 20140515
  Serious: Yes (Death)
  Sender: FDA-Public Use
  Company Number: US-JNJFOC-20130617405

PATIENT
  Sex: 0

DRUGS (6)
  1. DOXORUBICIN [Suspect]
     Indication: MANTLE CELL LYMPHOMA
     Route: 042
  2. RITUXIMAB [Suspect]
     Indication: MANTLE CELL LYMPHOMA
     Route: 065
  3. METHOTREXATE [Suspect]
     Indication: MANTLE CELL LYMPHOMA
     Dosage: 4.2 G/M2
     Route: 065
  4. CYCLOPHOSPHAMIDE [Suspect]
     Indication: MANTLE CELL LYMPHOMA
     Route: 065
  5. VINCRISTINE [Suspect]
     Indication: MANTLE CELL LYMPHOMA
     Route: 065
  6. GRANULOCYTE COLONY STIMULATING FACTOR [Suspect]
     Indication: MANTLE CELL LYMPHOMA
     Route: 065

REACTIONS (1)
  - Sepsis [Fatal]
